FAERS Safety Report 7721075-8 (Version None)
Quarter: 2011Q3

REPORT INFORMATION
  Report Type: 
  Country: None (occurrence: None)
  Receive Date: 20110831
  Receipt Date: 20110119
  Transmission Date: 20111222
  Serious: No
  Sender: FDA-Public Use
  Company Number: US-BAYER-2011-007181

PATIENT
  Sex: Female

DRUGS (1)
  1. MIRENA [Suspect]
     Indication: CONTRACEPTION
     Dosage: 20 ?G/D, CONT
     Route: 015
     Dates: start: 20070101

REACTIONS (4)
  - HYPERTRICHOSIS [None]
  - AMENORRHOEA [None]
  - GENITAL HAEMORRHAGE [None]
  - MEDICAL DEVICE COMPLICATION [None]
